FAERS Safety Report 20928971 (Version 1)
Quarter: 2022Q2

REPORT INFORMATION
  Report Type: Report from Study
  Country: BR (occurrence: BR)
  Receive Date: 20220608
  Receipt Date: 20220608
  Transmission Date: 20220721
  Serious: Yes (Other)
  Sender: FDA-Public Use
  Company Number: BR-ABBVIE-21K-020-4181116-00

PATIENT
  Sex: Female
  Weight: 50 kg

DRUGS (4)
  1. RINVOQ [Suspect]
     Active Substance: UPADACITINIB
     Indication: Rheumatoid arthritis
     Route: 048
     Dates: start: 20210517, end: 20211101
  2. HUMIRA [Suspect]
     Active Substance: ADALIMUMAB
     Indication: Product used for unknown indication
     Route: 058
  3. LOSARTAN [Concomitant]
     Active Substance: LOSARTAN
     Indication: Hypertension
  4. HYDROCHLOROTHIAZIDE [Concomitant]
     Active Substance: HYDROCHLOROTHIAZIDE
     Indication: Hypertension

REACTIONS (24)
  - Visual impairment [Not Recovered/Not Resolved]
  - Syncope [Recovered/Resolved]
  - Dizziness [Not Recovered/Not Resolved]
  - Balance disorder [Not Recovered/Not Resolved]
  - Finger deformity [Not Recovered/Not Resolved]
  - Asthenia [Unknown]
  - Joint range of motion decreased [Recovered/Resolved]
  - Head discomfort [Unknown]
  - Gait disturbance [Not Recovered/Not Resolved]
  - Joint range of motion decreased [Recovered/Resolved]
  - Mobility decreased [Unknown]
  - Grip strength decreased [Unknown]
  - Product storage error [Not Recovered/Not Resolved]
  - Insomnia [Unknown]
  - Nodule [Recovered/Resolved]
  - Diabetes mellitus [Recovering/Resolving]
  - Crying [Recovered/Resolved]
  - Stress [Unknown]
  - Pain [Recovered/Resolved]
  - Arthralgia [Recovered/Resolved]
  - Bone pain [Recovered/Resolved]
  - Pain [Recovered/Resolved]
  - Pelvic pain [Unknown]
  - Drug ineffective [Unknown]

NARRATIVE: CASE EVENT DATE: 20210101
